FAERS Safety Report 5030527-3 (Version None)
Quarter: 2006Q2

REPORT INFORMATION
  Report Type: 
  Country: None (occurrence: None)
  Receive Date: 20060614
  Receipt Date: 20060602
  Transmission Date: 20061013
  Serious: Yes (Death, Life-Threatening, Disabling)
  Sender: FDA-Public Use
  Company Number: 2006JP000687

PATIENT
  Age: 42 Year
  Sex: Female
  Weight: 51 kg

DRUGS (18)
  1. PROGRAF [Suspect]
     Indication: BONE MARROW TRANSPLANT
     Dosage: 0.5 MG, CONTINUOUS, IV NOS; SEE IMAGE
     Route: 042
     Dates: start: 20020605, end: 20020610
  2. PROGRAF [Suspect]
     Indication: BONE MARROW TRANSPLANT
     Dosage: 0.5 MG, CONTINUOUS, IV NOS; SEE IMAGE
     Route: 042
     Dates: start: 20020611, end: 20020613
  3. PROGRAF [Suspect]
     Indication: BONE MARROW TRANSPLANT
     Dosage: 0.5 MG, CONTINUOUS, IV NOS; SEE IMAGE
     Route: 042
     Dates: start: 20020614, end: 20020618
  4. CYCLOSPORINE [Suspect]
     Indication: GRAFT VERSUS HOST DISEASE
     Dosage: 50 MG, CONTINUOUS, IV
     Route: 042
     Dates: start: 20020509, end: 20020604
  5. SOLU-MEDROL [Suspect]
     Indication: GRAFT VERSUS HOST DISEASE
     Dosage: SEE IMAGE
     Route: 042
     Dates: start: 20020525, end: 20020604
  6. SOLU-MEDROL [Suspect]
     Indication: GRAFT VERSUS HOST DISEASE
     Dosage: SEE IMAGE
     Route: 042
     Dates: start: 20020605, end: 20020607
  7. SOLU-MEDROL [Suspect]
     Indication: GRAFT VERSUS HOST DISEASE
     Dosage: SEE IMAGE
     Route: 042
     Dates: start: 20020608, end: 20020614
  8. SOLU-MEDROL [Suspect]
     Indication: GRAFT VERSUS HOST DISEASE
     Dosage: SEE IMAGE
     Route: 042
     Dates: start: 20020615, end: 20020618
  9. SOLU-MEDROL [Suspect]
     Indication: GRAFT VERSUS HOST DISEASE
     Dosage: 60 MG, UID/QD, IV NOS
     Route: 042
     Dates: start: 20020525, end: 20020604
  10. METHOTREXATE [Concomitant]
  11. LEVOFLOXACIN [Concomitant]
  12. ZOVIRAX [Concomitant]
  13. VANCOMYCIN HYDROCHLORIDE [Concomitant]
  14. CEFOTIAM HYDROCHLORIDE [Concomitant]
  15. DIFLUCAN [Concomitant]
  16. MEROPEN (MEROPENEM) [Concomitant]
  17. VANCOMYCIN HYDROCHLORIDE [Concomitant]
  18. BACTRIM [Concomitant]

REACTIONS (8)
  - CONDITION AGGRAVATED [None]
  - ENCEPHALITIS HERPES [None]
  - GRAFT VERSUS HOST DISEASE [None]
  - HAEMODIALYSIS [None]
  - HEPATIC FAILURE [None]
  - METASTASES TO LIVER [None]
  - THROMBOTIC MICROANGIOPATHY [None]
  - VENOOCCLUSIVE LIVER DISEASE [None]
